FAERS Safety Report 25137713 (Version 1)
Quarter: 2025Q1

REPORT INFORMATION
  Report Type: Spontaneous
  Country: IN (occurrence: IN)
  Receive Date: 20250329
  Receipt Date: 20250329
  Transmission Date: 20250409
  Serious: Yes (Other)
  Sender: MACLEODS
  Company Number: IN-MLMSERVICE-20250313-PI442853-00322-1

PATIENT

DRUGS (1)
  1. TRAMADOL [Suspect]
     Active Substance: TRAMADOL
     Indication: Diabetic neuropathy
     Dosage: 1,000-1,200 MG
     Route: 030

REACTIONS (15)
  - Drug withdrawal syndrome [Recovered/Resolved]
  - Drug dependence [Recovered/Resolved]
  - Drug abuse [Unknown]
  - Insomnia [Recovered/Resolved]
  - Hyperhidrosis [Recovered/Resolved]
  - Decreased appetite [Recovered/Resolved]
  - Phonophobia [Recovered/Resolved]
  - Drug withdrawal headache [Recovered/Resolved]
  - Temperature intolerance [Recovered/Resolved]
  - Restlessness [Recovered/Resolved]
  - Photophobia [Recovered/Resolved]
  - Anxiety [Recovered/Resolved]
  - Tremor [Recovered/Resolved]
  - Palpitations [Recovered/Resolved]
  - Drug dependence [Recovered/Resolved]
